FAERS Safety Report 4899288-2 (Version None)
Quarter: 2006Q1

REPORT INFORMATION
  Report Type: 
  Country: None (occurrence: None)
  Receive Date: 20060131
  Receipt Date: 20060119
  Transmission Date: 20060701
  Serious: Yes (Hospitalization)
  Sender: FDA-Public Use
  Company Number: 02100-JPN-06-0016

PATIENT
  Age: 81 Year
  Sex: Female

DRUGS (3)
  1. CILOSTAZOL [Suspect]
     Dosage: 200 MG, ORAL
     Route: 048
     Dates: start: 20060110, end: 20060112
  2. ASPIRIN [Suspect]
     Dosage: 100 MG, ORAL
     Route: 048
     Dates: start: 20060110, end: 20060112
  3. HEPARIN SODIUM [Suspect]
     Dosage: 10 ML IV
     Route: 042
     Dates: end: 20060112

REACTIONS (1)
  - MUSCLE HAEMORRHAGE [None]
